FAERS Safety Report 14694131 (Version 3)
Quarter: 2020Q3

REPORT INFORMATION
  Report Type: Report from Study
  Country: BE (occurrence: BE)
  Receive Date: 20180329
  Receipt Date: 20180918
  Transmission Date: 20201105
  Serious: No
  Sender: FDA-Public Use
  Company Number: BE-JNJFOC-20180331079

PATIENT
  Age: 4 Decade
  Sex: Female
  Weight: 65 kg

DRUGS (3)
  1. IMODIUM [Concomitant]
     Active Substance: LOPERAMIDE HYDROCHLORIDE
     Indication: DIARRHOEA
     Route: 048
     Dates: start: 20141001, end: 20141001
  2. USTEKINUMAB [Suspect]
     Active Substance: USTEKINUMAB
     Route: 058
  3. USTEKINUMAB [Suspect]
     Active Substance: USTEKINUMAB
     Indication: CROHN^S DISEASE
     Route: 058
     Dates: start: 20120612, end: 20170312

REACTIONS (1)
  - Basal cell carcinoma [Recovered/Resolved]

NARRATIVE: CASE EVENT DATE: 20161118
